FAERS Safety Report 6475067-X (Version None)
Quarter: 2009Q4

REPORT INFORMATION
  Report Type: 
  Country: None (occurrence: None)
  Receive Date: 20091204
  Receipt Date: 20090710
  Transmission Date: 20100525
  Serious: Yes (Hospitalization)
  Sender: FDA-Public Use
  Company Number: DE-ELI_LILLY_AND_COMPANY-DE200904000693

PATIENT
  Sex: Male
  Weight: 84 kg

DRUGS (2)
  1. GEMCITABINE HCL [Suspect]
     Indication: PANCREATIC CARCINOMA
     Dosage: 1900 MG SEVEN INFUSIONS IN EIGHT WEEKS (237.5MG/INFUSION)
     Route: 042
     Dates: start: 20081107, end: 20090313
  2. BLINDED THERAPY [Suspect]
     Indication: PANCREATIC CARCINOMA
     Dosage: 420 ML SEVEN INFUSIONS IN EIGHT WEEKS (52.5ML/INFUSION)
     Route: 042
     Dates: start: 20081107, end: 20090313

REACTIONS (1)
  - THROMBOANGIITIS OBLITERANS [None]
